FAERS Safety Report 13913941 (Version 1)
Quarter: 2017Q3

REPORT INFORMATION
  Report Type: Spontaneous
  Country: US (occurrence: US)
  Receive Date: 20170828
  Receipt Date: 20170828
  Transmission Date: 20171127
  Serious: No
  Sender: FDA-Public Use
  Company Number: US-ROCHE-1140437

PATIENT
  Sex: Female
  Weight: 46.8 kg

DRUGS (4)
  1. ROCALTROL [Concomitant]
     Active Substance: CALCITRIOL
     Route: 065
  2. NUTROPIN AQ [Suspect]
     Active Substance: SOMATROPIN
     Indication: HYPOPITUITARISM
  3. NUTROPIN AQ [Suspect]
     Active Substance: SOMATROPIN
     Indication: DWARFISM
     Dosage: 03 MG/KG/WEEK
     Route: 058
  4. CORTEF [Concomitant]
     Active Substance: HYDROCORTISONE

REACTIONS (1)
  - Fungal infection [Unknown]
